FAERS Safety Report 21610932 (Version 1)
Quarter: 2022Q4

REPORT INFORMATION
  Report Type: Spontaneous
  Country: JP (occurrence: JP)
  Receive Date: 20221117
  Receipt Date: 20221117
  Transmission Date: 20230113
  Serious: Yes (Hospitalization)
  Sender: FDA-Public Use
  Company Number: JP-Eisai-202210653_DVG_P_1

PATIENT
  Sex: Male
  Weight: 2.155 kg

DRUGS (8)
  1. DAYVIGO [Suspect]
     Active Substance: LEMBOREXANT
     Indication: Product used for unknown indication
     Route: 048
  2. DAYVIGO [Suspect]
     Active Substance: LEMBOREXANT
     Dosage: VIA BREAST MILK
     Route: 048
  3. ETIZOLAM [Suspect]
     Active Substance: ETIZOLAM
     Indication: Product used for unknown indication
     Dosage: 0.25MG 3-6 TIMES/DAY (PRN)
     Route: 048
  4. ETIZOLAM [Suspect]
     Active Substance: ETIZOLAM
     Dosage: 0.25MG 3-6 TIMES/DAY (PRN), VIA BREAST MILK
     Route: 048
  5. VENLAFAXINE HYDROCHLORIDE [Suspect]
     Active Substance: VENLAFAXINE HYDROCHLORIDE
     Indication: Product used for unknown indication
     Route: 048
  6. VENLAFAXINE HYDROCHLORIDE [Suspect]
     Active Substance: VENLAFAXINE HYDROCHLORIDE
     Dosage: VIA BREAST MILK
     Route: 048
  7. MAGNESIUM SULFATE HEPTAHYDRATE [Concomitant]
     Active Substance: MAGNESIUM SULFATE HEPTAHYDRATE
     Indication: Product used for unknown indication
     Dosage: DOSE AND FREQUENCY UNKNOWN
     Route: 048
  8. MAGNESIUM SULFATE HEPTAHYDRATE [Concomitant]
     Active Substance: MAGNESIUM SULFATE HEPTAHYDRATE
     Dosage: DOSE AND FREQUENCY UNKNOWN, VIA BREAST MILK
     Route: 048

REACTIONS (7)
  - Drug withdrawal syndrome neonatal [Recovering/Resolving]
  - Acidosis [Unknown]
  - Hypermagnesaemia [Unknown]
  - Feeding disorder [Unknown]
  - Somnolence neonatal [Recovering/Resolving]
  - Exposure via breast milk [Recovering/Resolving]
  - Foetal exposure during pregnancy [Recovering/Resolving]
